FAERS Safety Report 9156641 (Version 1)
Quarter: 2013Q1

REPORT INFORMATION
  Report Type: Spontaneous
  Country: US (occurrence: None)
  Receive Date: 20130307
  Receipt Date: 20130307
  Transmission Date: 20140127
  Serious: No
  Sender: FDA-Public Use
  Company Number: None

PATIENT
  Age: 43 Year
  Sex: Female
  Weight: 64.86 kg

DRUGS (2)
  1. OMEPRAZOLE [Suspect]
     Indication: GASTROOESOPHAGEAL REFLUX DISEASE
     Route: 048
     Dates: start: 20110801, end: 20130213
  2. ACIPHEX [Suspect]
     Route: 048
     Dates: start: 20130214, end: 20130304

REACTIONS (9)
  - Dizziness [None]
  - Dizziness [None]
  - Muscle twitching [None]
  - Constipation [None]
  - Abdominal distension [None]
  - Flatulence [None]
  - Depression [None]
  - Disturbance in attention [None]
  - Diarrhoea [None]
